APPROVED DRUG PRODUCT: RANITIDINE HYDROCHLORIDE
Active Ingredient: RANITIDINE HYDROCHLORIDE
Strength: EQ 150MG BASE
Dosage Form/Route: TABLET;ORAL
Application: A210010 | Product #001
Applicant: STRIDES PHARMA GLOBAL PTE LTD
Approved: Aug 1, 2018 | RLD: No | RS: No | Type: DISCN